FAERS Safety Report 5868512-1 (Version None)
Quarter: 2008Q3

REPORT INFORMATION
  Report Type: 
  Country: None (occurrence: None)
  Receive Date: 20080828
  Receipt Date: 20080815
  Transmission Date: 20090109
  Serious: No
  Sender: FDA-Public Use
  Company Number: OSCN-PR-0710S-0379

PATIENT
  Age: 67 Year
  Sex: Female

DRUGS (1)
  1. OMNISCAN [Suspect]
     Indication: RENAL CYST
     Dosage: 16 ML, SINGLE DOSE, I.V.
     Route: 042
     Dates: start: 20070807, end: 20070807

REACTIONS (1)
  - NO ADVERSE EVENT [None]
